FAERS Safety Report 8862074 (Version 1)
Quarter: 2012Q4

REPORT INFORMATION
  Report Type: 
  Country: CH (occurrence: CH)
  Receive Date: 20121026
  Receipt Date: 20121026
  Transmission Date: 20130627
  Serious: Yes (Hospitalization, Other)
  Sender: FDA-Public Use
  Company Number: CH-ELI_LILLY_AND_COMPANY-CH201210007151

PATIENT
  Age: 55 None
  Sex: Male

DRUGS (13)
  1. EFIENT [Suspect]
     Indication: ACUTE MYOCARDIAL INFARCTION
     Dosage: 10 mg, qd
     Route: 048
     Dates: start: 201112
  2. NEXIUM [Concomitant]
     Indication: GASTRITIS
     Dosage: 40 mg, bid
     Route: 048
     Dates: start: 20120404, end: 20120408
  3. ASPIRIN [Concomitant]
     Dosage: 100 mg, qd
     Dates: start: 201112
  4. BELOC ZOK [Concomitant]
     Indication: ACUTE MYOCARDIAL INFARCTION
     Dosage: 100 mg, qd
     Route: 048
     Dates: start: 201112
  5. CRESTOR [Concomitant]
     Indication: ACUTE MYOCARDIAL INFARCTION
     Dosage: 20 mg, qd
     Route: 048
     Dates: start: 201112
  6. ATACAND [Concomitant]
     Indication: ESSENTIAL HYPERTENSION
     Dosage: 8 mg, qd
     Route: 048
     Dates: start: 20120420
  7. ENALAPRIL [Concomitant]
     Indication: ESSENTIAL HYPERTENSION
     Dosage: UNK
     Route: 048
     Dates: start: 201112, end: 20120420
  8. PAROXETINE [Concomitant]
     Indication: DEPRESSION
     Dosage: 20 mg, qd
     Route: 048
     Dates: start: 2007
  9. ZOLPIDEM [Concomitant]
     Indication: INSOMNIA
     Dosage: 10 mg, qd
     Route: 048
     Dates: start: 2007
  10. SPIRONOLACTONE [Concomitant]
     Indication: CARDIAC FAILURE CONGESTIVE
     Dosage: 12.5 mg, qd
     Route: 048
     Dates: start: 20120420
  11. TORASEMIDE [Concomitant]
     Indication: CARDIAC FAILURE CONGESTIVE
     Dosage: 2.5 mg, qd
     Route: 048
     Dates: start: 20120420
  12. EXFORGE [Concomitant]
     Indication: ESSENTIAL HYPERTENSION
     Dosage: UNK
     Route: 048
     Dates: end: 201112
  13. EVEROLIMUS [Concomitant]
     Indication: ACUTE MYOCARDIAL INFARCTION
     Dosage: UNK
     Dates: start: 201112

REACTIONS (8)
  - Prurigo [Unknown]
  - Cardiac failure [Unknown]
  - Rash erythematous [Unknown]
  - Eosinophilia [Unknown]
  - Ascites [Unknown]
  - Hepatomegaly [Unknown]
  - Eczema eyelids [Unknown]
  - Gastritis [Unknown]
